FAERS Safety Report 14977796 (Version 2)
Quarter: 2018Q2

REPORT INFORMATION
  Report Type: Report from Study
  Country: US (occurrence: US)
  Receive Date: 20180606
  Receipt Date: 20180609
  Transmission Date: 20180711
  Serious: Yes (Death, Hospitalization)
  Sender: FDA-Public Use
  Company Number: US-ROCHE-2133188

PATIENT
  Age: 53 Year
  Sex: Male

DRUGS (3)
  1. CATHFLO ACTIVASE [Suspect]
     Active Substance: ALTEPLASE
     Indication: CEREBRAL INFARCTION
     Route: 065
     Dates: start: 20180502
  2. CATHFLO ACTIVASE [Suspect]
     Active Substance: ALTEPLASE
     Route: 065
     Dates: start: 20180504
  3. CATHFLO ACTIVASE [Suspect]
     Active Substance: ALTEPLASE
     Route: 065
     Dates: start: 20180503

REACTIONS (1)
  - Multiple organ dysfunction syndrome [Fatal]

NARRATIVE: CASE EVENT DATE: 20180521
